FAERS Safety Report 6891726-9 (Version None)
Quarter: 2010Q3

REPORT INFORMATION
  Report Type: 
  Country: None (occurrence: None)
  Receive Date: 20100731
  Receipt Date: 20071004
  Transmission Date: 20110219
  Serious: No
  Sender: FDA-Public Use
  Company Number: US-PFIZER INC-2007083672

PATIENT
  Sex: Female

DRUGS (4)
  1. NEURONTIN [Suspect]
  2. CHANTIX [Concomitant]
  3. OSTEO BI-FLEX [Concomitant]
  4. AMBIEN [Concomitant]

REACTIONS (2)
  - BURNING SENSATION [None]
  - PLANTAR ERYTHEMA [None]
